FAERS Safety Report 19018370 (Version 1)
Quarter: 2021Q1

REPORT INFORMATION
  Report Type: Spontaneous
  Country: US (occurrence: US)
  Receive Date: 20210315
  Receipt Date: 20210315
  Transmission Date: 20210420
  Serious: No
  Sender: FDA-Public Use
  Company Number: None

PATIENT
  Age: 30 Year
  Weight: 70 kg

DRUGS (1)
  1. FLANADOL PRONTO BISMUTH [Suspect]
     Active Substance: BISMUTH SUBSALICYLATE

REACTIONS (2)
  - Wrong product administered [None]
  - Confusional state [None]

NARRATIVE: CASE EVENT DATE: 20210315
